FAERS Safety Report 7005192-6 (Version None)
Quarter: 2010Q3

REPORT INFORMATION
  Report Type: 
  Country: None (occurrence: None)
  Receive Date: 20100921
  Receipt Date: 20100909
  Transmission Date: 20110219
  Serious: Yes (Hospitalization, Other)
  Sender: FDA-Public Use
  Company Number: FR-BAYER-201039132GPV

PATIENT
  Age: 67 Year
  Sex: Male

DRUGS (18)
  1. GLUCOR [Interacting]
     Indication: TYPE 2 DIABETES MELLITUS
     Dosage: AS USED: 3 X 1 DF
     Route: 048
     Dates: end: 20100403
  2. GLUCOPHAGE [Interacting]
     Indication: TYPE 2 DIABETES MELLITUS
     Dosage: AS USED: 3 X 1 DF
     Route: 048
     Dates: end: 20100403
  3. DIAMICRON [Suspect]
     Indication: TYPE 2 DIABETES MELLITUS
     Dosage: AS USED: 3 X 1 DF
     Route: 048
     Dates: end: 20100403
  4. ENALAPRIL [Concomitant]
     Indication: HYPERTENSION
     Route: 048
  5. LERCANIDIPINE [Concomitant]
     Indication: HYPERTENSION
     Route: 048
  6. MEDIATENSYL [Concomitant]
     Indication: HYPERTENSION
     Route: 048
  7. KARDEGIC [Concomitant]
     Indication: CARDIAC FAILURE
     Route: 048
  8. PLAVIX [Concomitant]
     Indication: CARDIAC FAILURE
     Route: 048
  9. TEMERIT [Concomitant]
     Indication: CARDIAC FAILURE
     Route: 048
  10. RISORDAN [Concomitant]
     Indication: CARDIAC FAILURE
     Route: 048
  11. ALPRAZOLAM [Concomitant]
     Indication: ANXIETY
     Route: 048
  12. STILNOX [Concomitant]
     Indication: INSOMNIA
     Route: 048
  13. CRESTOR [Concomitant]
     Indication: HYPERCHOLESTEROLAEMIA
     Dosage: LONG TERM TREATMENT
     Route: 048
  14. PRAXILENE [Concomitant]
     Route: 048
  15. TRIMETAZIDINE [Concomitant]
     Dosage: LONG TERM TREATMENT
     Route: 048
  16. LANTUS [Concomitant]
  17. LASIX [Concomitant]
  18. ARANESP [Concomitant]

REACTIONS (7)
  - DIARRHOEA [None]
  - DYSARTHRIA [None]
  - FACIAL ASYMMETRY [None]
  - HYPOGLYCAEMIA [None]
  - METABOLIC ACIDOSIS [None]
  - SYNCOPE [None]
  - VISION BLURRED [None]
